FAERS Safety Report 16213280 (Version 1)
Quarter: 2019Q2

REPORT INFORMATION
  Report Type: Spontaneous
  Country: US (occurrence: US)
  Receive Date: 20190418
  Receipt Date: 20190418
  Transmission Date: 20190711
  Serious: No
  Sender: FDA-Public Use
  Company Number: US-BAYER-2019-071032

PATIENT
  Age: 26 Year
  Sex: Female

DRUGS (1)
  1. CIPRO [Suspect]
     Active Substance: CIPROFLOXACIN HYDROCHLORIDE
     Indication: URINARY TRACT INFECTION
     Dosage: 500 MG, BID
     Dates: start: 20180710, end: 20180712

REACTIONS (16)
  - Arthropathy [Not Recovered/Not Resolved]
  - Arthralgia [Not Recovered/Not Resolved]
  - Hallucination, auditory [Recovered/Resolved]
  - Myalgia [Not Recovered/Not Resolved]
  - Mobility decreased [Recovering/Resolving]
  - Oedema peripheral [Recovered/Resolved]
  - Pain [Not Recovered/Not Resolved]
  - Neuralgia [Not Recovered/Not Resolved]
  - Ocular icterus [Recovered/Resolved]
  - Musculoskeletal stiffness [Not Recovered/Not Resolved]
  - Anxiety [Recovering/Resolving]
  - Fatigue [Not Recovered/Not Resolved]
  - Dizziness [Recovered/Resolved]
  - Confusional state [Recovering/Resolving]
  - Feeling abnormal [Recovering/Resolving]
  - Face oedema [Recovered/Resolved]

NARRATIVE: CASE EVENT DATE: 20180712
